FAERS Safety Report 4505372-5 (Version None)
Quarter: 2004Q4

REPORT INFORMATION
  Report Type: 
  Country: None (occurrence: None)
  Receive Date: 20041118
  Receipt Date: 20041118
  Transmission Date: 20050328
  Serious: Yes (Hospitalization)
  Sender: FDA-Public Use
  Company Number: None

PATIENT
  Sex: Male
  Weight: 48.4895 kg

DRUGS (12)
  1. ZETIA [Suspect]
     Indication: HYPERCHOLESTEROLAEMIA
     Dosage: 10 MG BID ORAL
     Route: 048
     Dates: start: 20040909, end: 20041201
  2. ZONEGRAN [Concomitant]
  3. ERYTHROMYCIN [Concomitant]
  4. PHOSLO [Concomitant]
  5. EPOGEN [Concomitant]
  6. VERELAN [Concomitant]
  7. GEMFIBROZIL [Concomitant]
  8. SYNTHROID [Concomitant]
  9. M.V.I. [Concomitant]
  10. PREVACID [Concomitant]
  11. AVAPRO [Concomitant]
  12. LASIX [Concomitant]

REACTIONS (1)
  - PANCREATITIS [None]
